FAERS Safety Report 11577925 (Version 1)
Quarter: 2015Q3

REPORT INFORMATION
  Report Type: Spontaneous
  Country: US (occurrence: None)
  Receive Date: 20150930
  Receipt Date: 20150930
  Transmission Date: 20151125
  Serious: No
  Sender: FDA-Public Use
  Company Number: US-MDT-ADR-2015-01874

PATIENT
  Age: 51 Year
  Sex: Female

DRUGS (2)
  1. BACLOFEN INTRATHECAL 450 MCG/ML [Suspect]
     Active Substance: BACLOFEN
     Indication: SPINAL PAIN
     Dosage: 84.28 MCG/DAY
  2. BUPIVACAINE INTRATHECAL 40 MG/ML [Suspect]
     Active Substance: BUPIVACAINE
     Indication: SPINAL PAIN
     Dosage: 7.491 MG/DAY

REACTIONS (1)
  - Pain [None]
